FAERS Safety Report 12557613 (Version 1)
Quarter: 2016Q3

REPORT INFORMATION
  Report Type: Spontaneous
  Country: GB (occurrence: GB)
  Receive Date: 20160714
  Receipt Date: 20160714
  Transmission Date: 20161109
  Serious: Yes (Other)
  Sender: FDA-Public Use
  Company Number: GB-RARE DISEASE THERAPEUTICS, INC.-1055063

PATIENT
  Age: 36 Year
  Sex: Female

DRUGS (5)
  1. MESALAZINE [Concomitant]
     Active Substance: MESALAMINE
  2. COTRIMOXAZOLE [Concomitant]
     Active Substance: SULFAMETHOXAZOLE\TRIMETHOPRIM
  3. PREDNISOLONE. [Concomitant]
     Active Substance: PREDNISOLONE
  4. CYCLOSPORINE. [Concomitant]
     Active Substance: CYCLOSPORINE
  5. PURIXAN [Suspect]
     Active Substance: MERCAPTOPURINE
     Indication: COLITIS
     Route: 048
     Dates: start: 20160602

REACTIONS (2)
  - Photosensitivity reaction [Not Recovered/Not Resolved]
  - Pruritus [Unknown]

NARRATIVE: CASE EVENT DATE: 20160604
